FAERS Safety Report 5265696-3 (Version None)
Quarter: 2007Q1

REPORT INFORMATION
  Report Type: 
  Country: None (occurrence: None)
  Receive Date: 20061213
  Receipt Date: 20040326
  Transmission Date: 20070707
  Serious: Yes (Other)
  Sender: FDA-Public Use
  Company Number: 2004UW03586

PATIENT
  Age: 72 Year
  Sex: Male
  Weight: 75.7507 kg

DRUGS (17)
  1. IRESSA [Suspect]
     Indication: NON-SMALL CELL LUNG CANCER RECURRENT
     Dosage: 250 MG QD PO
     Route: 048
     Dates: start: 20040215, end: 20040301
  2. IRESSA [Suspect]
     Indication: NON-SMALL CELL LUNG CANCER RECURRENT
     Dosage: 250 MG QD PO
     Route: 048
     Dates: start: 20040316
  3. CARAFATE [Concomitant]
  4. ATIVAN [Concomitant]
  5. PRILOSEC [Concomitant]
  6. TOPROL-XL [Concomitant]
  7. HYDROCODONE/HOMATROPINE [Concomitant]
  8. ZOFRAN [Concomitant]
  9. PHENERGAN HCL [Concomitant]
  10. ADVAIR DISKUS 100/50 [Concomitant]
  11. MIRALAX [Concomitant]
  12. ASPIRIN [Concomitant]
  13. GUAIFENESIN [Concomitant]
  14. BOOST [Concomitant]
  15. MILK OF MAGNESIA [Concomitant]
  16. COMBIVENT [Concomitant]
  17. LORTAB [Concomitant]

REACTIONS (1)
  - PHOTOSENSITIVITY REACTION [None]
